FAERS Safety Report 24386020 (Version 1)
Quarter: 2024Q4

REPORT INFORMATION
  Report Type: Spontaneous
  Country: TR (occurrence: TR)
  Receive Date: 20241001
  Receipt Date: 20241001
  Transmission Date: 20250115
  Serious: Yes (Other)
  Sender: DAIICHI
  Company Number: TR-DSJP-DS-2024-100096-TR

PATIENT
  Sex: Female

DRUGS (1)
  1. ENHERTU [Suspect]
     Active Substance: FAM-TRASTUZUMAB DERUXTECAN-NXKI
     Indication: Lung neoplasm malignant
     Dosage: UNK, CYCLIC
     Route: 065

REACTIONS (3)
  - Delirium [Unknown]
  - Epilepsy [Unknown]
  - General physical health deterioration [Unknown]
